FAERS Safety Report 6330033-X (Version None)
Quarter: 2009Q3

REPORT INFORMATION
  Report Type: 
  Country: None (occurrence: None)
  Receive Date: 20090825
  Receipt Date: 20090817
  Transmission Date: 20100115
  Serious: Yes (Hospitalization)
  Sender: FDA-Public Use
  Company Number: TPA2009A01013

PATIENT
  Age: 73 Year
  Sex: Male
  Weight: 80.7403 kg

DRUGS (8)
  1. ACTOS [Suspect]
     Indication: DYSLIPIDAEMIA
     Dosage: 45 MG, 1 IN 1 D, PER ORAL; 30 MG, 1 IN 1 D, PER ORAL
     Route: 048
     Dates: end: 20090513
  2. ACTOS [Suspect]
     Indication: TYPE 2 DIABETES MELLITUS
     Dosage: 45 MG, 1 IN 1 D, PER ORAL; 30 MG, 1 IN 1 D, PER ORAL
     Route: 048
     Dates: end: 20090513
  3. GLYBURIDE [Concomitant]
  4. FERROUS SULFATE TAB [Concomitant]
  5. ATENOLOL [Concomitant]
  6. AGGRENOX (ACETYLSALTCYLIC ACID, DIPYRIDAMOLE) [Concomitant]
  7. PLAVIX [Concomitant]
  8. NIASPAN [Concomitant]

REACTIONS (6)
  - DIARRHOEA [None]
  - DYSPNOEA [None]
  - FATIGUE [None]
  - INFLUENZA [None]
  - OEDEMA PERIPHERAL [None]
  - VOMITING [None]
